FAERS Safety Report 7501083-2 (Version None)
Quarter: 2011Q2

REPORT INFORMATION
  Report Type: 
  Country: None (occurrence: None)
  Receive Date: 20110524
  Receipt Date: 20110519
  Transmission Date: 20111010
  Serious: Yes (Other)
  Sender: FDA-Public Use
  Company Number: BR-PFIZER INC-2011103290

PATIENT
  Age: 70 Year
  Sex: Female
  Weight: 76 kg

DRUGS (3)
  1. ALPRAZOLAM [Suspect]
     Indication: GASTROINTESTINAL DISORDER
     Dosage: 0.5 MG, 1X/DAY
     Route: 048
     Dates: start: 20110313, end: 20110512
  2. EXFORGE [Concomitant]
     Dosage: UNK
     Dates: start: 20080101
  3. ANGIPRESS [Concomitant]
     Dosage: UNK
     Dates: start: 20080101

REACTIONS (3)
  - ARTHROPATHY [None]
  - ARTHRALGIA [None]
  - MYALGIA [None]
